FAERS Safety Report 4750277-8 (Version None)
Quarter: 2005Q3

REPORT INFORMATION
  Report Type: 
  Country: None (occurrence: None)
  Receive Date: 20050818
  Receipt Date: 20050811
  Transmission Date: 20060218
  Serious: Yes (Other)
  Sender: FDA-Public Use
  Company Number: US-2005-003388

PATIENT
  Age: 48 Year
  Sex: Female
  Weight: 54.4 kg

DRUGS (5)
  1. MIRENA [Suspect]
     Indication: MENORRHAGIA
     Dosage: 20 ?G/DAY, CONT, INTRA-UTERINE
     Route: 015
     Dates: start: 20021016, end: 20050520
  2. CLIMARA [Suspect]
     Indication: HORMONE REPLACEMENT THERAPY
     Dosage: 37.5  ?G/DAY, CONT, TRANSDERMAL
     Route: 062
     Dates: start: 20030101, end: 20050401
  3. VENTOLOIN [Concomitant]
  4. AMERGE [Concomitant]
  5. ZANTAC [Concomitant]

REACTIONS (5)
  - ABDOMINAL DISTENSION [None]
  - CONDITION AGGRAVATED [None]
  - CONGENITAL CYSTIC DISEASE OF LIVER [None]
  - CONGENITAL CYSTIC KIDNEY DISEASE [None]
  - UTERINE MALPOSITION [None]
